FAERS Safety Report 8305281-X (Version None)
Quarter: 2012Q2

REPORT INFORMATION
  Report Type: 
  Country: None (occurrence: None)
  Receive Date: 20120418
  Receipt Date: 20120320
  Transmission Date: 20120825
  Serious: Yes (Death)
  Sender: FDA-Public Use
  Company Number: IMP_05810_2012

PATIENT
  Age: 20 Year
  Sex: Female

DRUGS (3)
  1. BISOPROLOL FUMARATE [Concomitant]
  2. MINOCYCLINE HCL [Suspect]
     Indication: PRODUCT USED FOR UNKNOWN INDICATION
     Dosage: (DF)
  3. POTASSIUM IODIDE [Concomitant]

REACTIONS (5)
  - ARRHYTHMIA [None]
  - RESUSCITATION [None]
  - MYOCARDITIS [None]
  - SUDDEN DEATH [None]
  - THYROID DISORDER [None]
